FAERS Safety Report 12738240 (Version 4)
Quarter: 2016Q4

REPORT INFORMATION
  Report Type: Report from Study
  Country: US (occurrence: US)
  Receive Date: 20160913
  Receipt Date: 20161228
  Transmission Date: 20170207
  Serious: Yes (Hospitalization)
  Sender: FDA-Public Use
  Company Number: US-ACTELION-A-US2016-139991

PATIENT
  Age: 74 Year
  Sex: Male

DRUGS (3)
  1. RIOCIGUAT [Concomitant]
     Active Substance: RIOCIGUAT
  2. TRACLEER [Concomitant]
     Active Substance: BOSENTAN
     Indication: PULMONARY ARTERIAL HYPERTENSION
  3. OPSUMIT [Suspect]
     Active Substance: MACITENTAN
     Indication: PULMONARY HYPERTENSION
     Dosage: 10 MG, QD
     Route: 048
     Dates: start: 20160630, end: 201609

REACTIONS (6)
  - Nausea [Unknown]
  - Headache [Unknown]
  - Ulcer haemorrhage [Unknown]
  - Sepsis [Unknown]
  - Fluid overload [Unknown]
  - Atrial septal defect repair [Unknown]
